FAERS Safety Report 15293390 (Version 1)
Quarter: 2018Q3

REPORT INFORMATION
  Report Type: Spontaneous
  Country: GB (occurrence: GB)
  Receive Date: 20180820
  Receipt Date: 20180820
  Transmission Date: 20181010
  Serious: Yes (Other)
  Sender: FDA-Public Use
  Company Number: GB-TEVA-2018-GB-943867

PATIENT
  Age: 19 Year
  Sex: Female

DRUGS (1)
  1. CITALOPRAM HYDROCHLORIDE [Suspect]
     Active Substance: CITALOPRAM HYDROCHLORIDE
     Indication: DEPRESSION
     Route: 048
     Dates: start: 20170415, end: 20171217

REACTIONS (1)
  - Cardiac flutter [Recovered/Resolved]
